FAERS Safety Report 8567643-5 (Version None)
Quarter: 2012Q3

REPORT INFORMATION
  Report Type: 
  Country: None (occurrence: None)
  Receive Date: 20120803
  Receipt Date: 20120112
  Transmission Date: 20120928
  Serious: Yes (Other)
  Sender: FDA-Public Use
  Company Number: US-ROCHE-1096862

PATIENT
  Sex: Female

DRUGS (9)
  1. XOLAIR [Suspect]
     Indication: ASTHMA
  2. FLUTICASONE PROPIONATE [Concomitant]
  3. SINGULAIR [Concomitant]
  4. ALLEGRA-D 12 HOUR [Concomitant]
  5. NASONEX [Concomitant]
  6. ALBUTEROL [Concomitant]
  7. PROVENTIL [Concomitant]
  8. PREDNISONE [Concomitant]
  9. CLARINEX [Concomitant]

REACTIONS (11)
  - COUGH [None]
  - BACK PAIN [None]
  - INCREASED UPPER AIRWAY SECRETION [None]
  - RHINITIS ALLERGIC [None]
  - WHEEZING [None]
  - ASTHMA [None]
  - FATIGUE [None]
  - PRODUCTIVE COUGH [None]
  - RHINORRHOEA [None]
  - DYSPNOEA [None]
  - RESPIRATORY TRACT CONGESTION [None]
